FAERS Safety Report 7230799-0 (Version None)
Quarter: 2011Q1

REPORT INFORMATION
  Report Type: 
  Country: None (occurrence: None)
  Receive Date: 20110107
  Receipt Date: 20101228
  Transmission Date: 20110831
  Serious: Yes (Hospitalization)
  Sender: FDA-Public Use
  Company Number: 1000017963

PATIENT
  Age: 83 Year
  Sex: Female

DRUGS (8)
  1. CITALOPRAM HYDROBROMIDE [Suspect]
     Indication: DEPRESSION
     Dosage: ORAL
     Route: 048
     Dates: start: 20101117
  2. DALACINE (CLINDAMYCIN HYDROCHLORIDE) (600 MILLIGRAM, SOLUTION) [Suspect]
     Indication: POST PROCEDURAL INFECTION
     Dosage: 1800 MG (600 MG,3 IN 1 D)
     Dates: start: 20101109, end: 20101128
  3. GYNO PEVARYL (ECONAZOLE NITRATE) (CREAM) (ECONAZOLE NITRATE) [Concomitant]
  4. VANCOMYCIN (VANCOMYCIN HYDROCHLORIDE) (VANCOMYCIN HYDROCHLORIDE) [Concomitant]
  5. GENTAMYCINE (GENTAMICIN SULFATE) (GENTAMICIN SULFATE) [Concomitant]
  6. BACTRIM [Suspect]
     Indication: POST PROCEDURAL INFECTION
     Dosage: 4 DF (2 DOSAGE FORMS,2 IN 1 D), ORAL
     Route: 048
     Dates: start: 20101109, end: 20101123
  7. BACTRIM [Suspect]
  8. STABLON (TIANEPTINE SODIUM) (TIANEPTINE SODIUM) [Concomitant]

REACTIONS (3)
  - RASH MACULO-PAPULAR [None]
  - ABDOMINAL PAIN LOWER [None]
  - RASH ERYTHEMATOUS [None]
